FAERS Safety Report 13005938 (Version 2)
Quarter: 2016Q4

REPORT INFORMATION
  Report Type: Spontaneous
  Country: FR (occurrence: FR)
  Receive Date: 20161207
  Receipt Date: 20161215
  Transmission Date: 20170207
  Serious: Yes (Life-Threatening, Other)
  Sender: FDA-Public Use
  Company Number: FR-ABBVIE-16P-056-1799951-00

PATIENT
  Sex: Female
  Weight: 65 kg

DRUGS (1)
  1. DUODOPA [Suspect]
     Active Substance: CARBIDOPA\LEVODOPA
     Indication: PRODUCT USED FOR UNKNOWN INDICATION
     Route: 050
     Dates: start: 20161129, end: 20161201

REACTIONS (4)
  - Stoma site extravasation [Unknown]
  - Pneumoperitoneum [Recovering/Resolving]
  - Peritonitis [Recovering/Resolving]
  - Complication of device insertion [Unknown]

NARRATIVE: CASE EVENT DATE: 2016
